FAERS Safety Report 5847668-0 (Version None)
Quarter: 2008Q3

REPORT INFORMATION
  Report Type: 
  Country: None (occurrence: None)
  Receive Date: 20080815
  Receipt Date: 20080815
  Transmission Date: 20090109
  Serious: No
  Sender: FDA-Public Use
  Company Number: None

PATIENT
  Sex: Female
  Weight: 64.8644 kg

DRUGS (1)
  1. CLINDAMYCIN HCL [Suspect]
     Indication: TOOTH EXTRACTION
     Dosage: 1 PILL EVERY 6 HRS. ORAL
     Route: 048
     Dates: start: 20080523, end: 20080529

REACTIONS (1)
  - PSEUDOMEMBRANOUS COLITIS [None]
